FAERS Safety Report 13148228 (Version 2)
Quarter: 2017Q1

REPORT INFORMATION
  Report Type: Spontaneous
  Country: US (occurrence: US)
  Receive Date: 20170125
  Receipt Date: 20170301
  Transmission Date: 20170428
  Serious: Yes (Other)
  Sender: FDA-Public Use
  Company Number: US-VERTEX PHARMACEUTICALS-2017-000424

PATIENT
  Age: 15 Year
  Sex: Female

DRUGS (8)
  1. OMEPRAZOLE. [Concomitant]
     Active Substance: OMEPRAZOLE
  2. PROVENTIL [Concomitant]
     Active Substance: ALBUTEROL
  3. LEVETIRACETAM. [Concomitant]
     Active Substance: LEVETIRACETAM
  4. AZELASTINE [Concomitant]
     Active Substance: AZELASTINE
  5. ORKAMBI [Suspect]
     Active Substance: IVACAFTOR\LUMACAFTOR
     Indication: CYSTIC FIBROSIS
     Dosage: UNK
     Route: 048
     Dates: start: 20170103, end: 201701
  6. MIR [Concomitant]
     Active Substance: MORPHINE SULFATE
  7. BUDESONIDE. [Concomitant]
     Active Substance: BUDESONIDE
  8. ERYTHROMYCIN. [Concomitant]
     Active Substance: ERYTHROMYCIN

REACTIONS (3)
  - Blood pressure increased [Unknown]
  - Heart rate increased [Recovered/Resolved]
  - Agitation [Recovered/Resolved]

NARRATIVE: CASE EVENT DATE: 201701
